FAERS Safety Report 7029003-8 (Version None)
Quarter: 2010Q4

REPORT INFORMATION
  Report Type: 
  Country: None (occurrence: None)
  Receive Date: 20101005
  Receipt Date: 20100928
  Transmission Date: 20110411
  Serious: Yes (Congenital Anomaly)
  Sender: FDA-Public Use
  Company Number: A0884564A

PATIENT
  Sex: Male
  Weight: 2.9 kg

DRUGS (5)
  1. LAMICTAL [Suspect]
     Indication: EPILEPSY
     Dosage: 400MG PER DAY
  2. TEGRETOL-XR [Suspect]
     Indication: EPILEPSY
     Dosage: 800MG PER DAY
  3. PRENATAL VITAMINS [Concomitant]
  4. FOLIC ACID [Concomitant]
  5. TOBACCO [Concomitant]
     Dosage: .5PACK PER DAY

REACTIONS (3)
  - ATRIAL SEPTAL DEFECT [None]
  - CARDIAC MURMUR [None]
  - DRUG EXPOSURE DURING PREGNANCY [None]
